FAERS Safety Report 13933105 (Version 1)
Quarter: 2017Q3

REPORT INFORMATION
  Report Type: Spontaneous
  Country: GR (occurrence: GR)
  Receive Date: 20170904
  Receipt Date: 20170904
  Transmission Date: 20171127
  Serious: Yes (Other)
  Sender: FDA-Public Use
  Company Number: GR-PFIZER INC-2017377562

PATIENT
  Sex: Female

DRUGS (1)
  1. METHOTREXATE SODIUM. [Suspect]
     Active Substance: METHOTREXATE SODIUM
     Indication: RHEUMATOID ARTHRITIS
     Dosage: 2 TABLETS IN THE MORNING AND 2 TABLETS IN THE EVENING EVERY WEDNESDAY
     Dates: start: 2017

REACTIONS (3)
  - Malignant melanoma [Unknown]
  - Alopecia [Unknown]
  - Acne [Unknown]

NARRATIVE: CASE EVENT DATE: 2017
